FAERS Safety Report 7971290-3 (Version None)
Quarter: 2011Q4

REPORT INFORMATION
  Report Type: 
  Country: None (occurrence: None)
  Receive Date: 20111212
  Receipt Date: 20110816
  Transmission Date: 20120403
  Serious: No
  Sender: FDA-Public Use
  Company Number: US-BRISTOL-MYERS SQUIBB COMPANY-15924913

PATIENT
  Age: 39 Year
  Sex: Female

DRUGS (2)
  1. IXEMPRA KIT [Suspect]
     Indication: BREAST CANCER
     Dates: start: 20110221
  2. CAPECITABINE [Suspect]
     Indication: BREAST CANCER
     Dosage: TAKEN ON 14/21DAYS
     Dates: start: 20110221

REACTIONS (3)
  - NAIL DISCOLOURATION [None]
  - NAIL AVULSION [None]
  - NAIL INFECTION [None]
